FAERS Safety Report 7849329-5 (Version None)
Quarter: 2011Q4

REPORT INFORMATION
  Report Type: 
  Country: None (occurrence: None)
  Receive Date: 20111021
  Receipt Date: 20111011
  Transmission Date: 20120403
  Serious: Yes (Hospitalization)
  Sender: FDA-Public Use
  Company Number: 2011GW000567

PATIENT
  Sex: Male

DRUGS (1)
  1. ZYCLARA [Suspect]
     Indication: PRODUCT USED FOR UNKNOWN INDICATION
     Dosage: 3.75 PCT;QD;TOP
     Route: 061

REACTIONS (6)
  - NAUSEA [None]
  - INFLUENZA LIKE ILLNESS [None]
  - FATIGUE [None]
  - INTERSTITIAL LUNG DISEASE [None]
  - ALVEOLITIS ALLERGIC [None]
  - OXYGEN SATURATION DECREASED [None]
